FAERS Safety Report 6759677-8 (Version None)
Quarter: 2010Q2

REPORT INFORMATION
  Report Type: 
  Country: None (occurrence: None)
  Receive Date: 20100608
  Receipt Date: 20100527
  Transmission Date: 20101027
  Serious: No
  Sender: FDA-Public Use
  Company Number: 2009BI039930

PATIENT
  Age: 44 Year
  Sex: Female

DRUGS (3)
  1. TYSABRI [Suspect]
     Indication: MULTIPLE SCLEROSIS
     Route: 042
     Dates: start: 20090825
  2. BENADRYL [Concomitant]
     Indication: PREMEDICATION
     Route: 048
     Dates: start: 20090101, end: 20090101
  3. BENADRYL [Concomitant]
     Route: 042
     Dates: start: 20090101

REACTIONS (10)
  - BALANCE DISORDER [None]
  - COUGH [None]
  - FATIGUE [None]
  - HYPOTONIA [None]
  - INFUSION SITE PAIN [None]
  - MUSCULAR WEAKNESS [None]
  - NASAL CONGESTION [None]
  - PERONEAL NERVE PALSY [None]
  - SINUSITIS [None]
  - SOMNOLENCE [None]
